FAERS Safety Report 20565446 (Version 1)
Quarter: 2022Q1

REPORT INFORMATION
  Report Type: Spontaneous
  Country: CN (occurrence: CN)
  Receive Date: 20220308
  Receipt Date: 20220308
  Transmission Date: 20220424
  Serious: Yes (Death, Other)
  Sender: FDA-Public Use
  Company Number: CN-BoehringerIngelheim-2022-BI-157598

PATIENT
  Age: 63 Year
  Sex: Male

DRUGS (4)
  1. AFATINIB [Suspect]
     Active Substance: AFATINIB
     Indication: EGFR gene mutation
     Route: 048
  2. AFATINIB [Suspect]
     Active Substance: AFATINIB
     Indication: Non-small cell lung cancer
  3. GEFITINIB [Concomitant]
     Active Substance: GEFITINIB
     Indication: EGFR gene mutation
  4. GEFITINIB [Concomitant]
     Active Substance: GEFITINIB
     Indication: Non-small cell lung cancer

REACTIONS (8)
  - Death [Fatal]
  - Pleural effusion [Unknown]
  - Lung disorder [Unknown]
  - Rash [Unknown]
  - Nausea [Unknown]
  - Vomiting [Unknown]
  - Diarrhoea [Unknown]
  - Cachexia [Unknown]

NARRATIVE: CASE EVENT DATE: 20180808
